FAERS Safety Report 8769239 (Version 2)
Quarter: 2012Q4

REPORT INFORMATION
  Report Type: 
  Country: US (occurrence: US)
  Receive Date: 20120904
  Receipt Date: 20120907
  Transmission Date: 20130627
  Serious: Yes (Other)
  Sender: FDA-Public Use
  Company Number: US-PFIZER INC-2012214561

PATIENT
  Age: 52 Year
  Sex: Female
  Weight: 72.56 kg

DRUGS (3)
  1. PRISTIQ [Suspect]
     Indication: DEPRESSION
     Dosage: 2 - 50 mg tablets (total 100 mg daily)
     Route: 048
  2. PRISTIQ [Suspect]
     Dosage: 2 - 100 mg tablets (total 200 mg, daily)
     Route: 048
     Dates: start: 201208, end: 201208
  3. ADVIL [Suspect]
     Dosage: UNK

REACTIONS (22)
  - Circumstance or information capable of leading to medication error [Unknown]
  - Drug ineffective [Unknown]
  - Breast cancer [Recovered/Resolved]
  - Headache [Unknown]
  - Insomnia [Unknown]
  - Fatigue [Unknown]
  - Nausea [Unknown]
  - Dry mouth [Unknown]
  - Decreased appetite [Unknown]
  - Dizziness [Unknown]
  - Swelling [Unknown]
  - Abdominal discomfort [Unknown]
  - Migraine [Unknown]
  - Rash [Recovering/Resolving]
  - Malaise [Unknown]
  - Palpitations [Unknown]
  - Hyperhidrosis [Unknown]
  - Constipation [Unknown]
  - Feeling abnormal [Unknown]
  - Crying [Unknown]
  - Speech disorder [Unknown]
  - Movement disorder [Unknown]
